FAERS Safety Report 15602694 (Version 1)
Quarter: 2018Q4

REPORT INFORMATION
  Report Type: Spontaneous
  Country: US (occurrence: US)
  Receive Date: 20181106
  Receipt Date: 20181106
  Transmission Date: 20190205
  Serious: No
  Sender: FDA-Public Use
  Company Number: None

PATIENT
  Age: 72 Year
  Sex: Male
  Weight: 56 kg

DRUGS (1)
  1. DABIGATRAN [Suspect]
     Active Substance: DABIGATRAN
     Indication: ATRIAL FIBRILLATION
     Route: 048
     Dates: start: 20181005, end: 20181008

REACTIONS (3)
  - Gastric ulcer haemorrhage [None]
  - Atrial fibrillation [None]
  - Iron deficiency anaemia [None]

NARRATIVE: CASE EVENT DATE: 20181008
